FAERS Safety Report 14484428 (Version 6)
Quarter: 2019Q3

REPORT INFORMATION
  Report Type: Spontaneous
  Country: US (occurrence: US)
  Receive Date: 20180205
  Receipt Date: 20190826
  Transmission Date: 20191004
  Serious: No
  Sender: FDA-Public Use
  Company Number: US-BIOGEN-2018BI00512805

PATIENT
  Age: 64 Year
  Sex: Male

DRUGS (19)
  1. AMPYRA [Concomitant]
     Active Substance: DALFAMPRIDINE
     Route: 050
  2. AMPYRA [Concomitant]
     Active Substance: DALFAMPRIDINE
     Route: 050
     Dates: start: 20170912
  3. ASPIRIN. [Concomitant]
     Active Substance: ASPIRIN
     Route: 050
     Dates: start: 20170109
  4. ATORVASTATIN [Concomitant]
     Active Substance: ATORVASTATIN
     Route: 050
  5. ZOLOFT [Concomitant]
     Active Substance: SERTRALINE HYDROCHLORIDE
     Route: 050
     Dates: start: 20170109
  6. LIPITOR [Concomitant]
     Active Substance: ATORVASTATIN CALCIUM
     Route: 050
     Dates: start: 20170109
  7. TECFIDERA [Suspect]
     Active Substance: DIMETHYL FUMARATE
     Route: 050
  8. AMPYRA [Concomitant]
     Active Substance: DALFAMPRIDINE
     Route: 050
  9. TECFIDERA [Suspect]
     Active Substance: DIMETHYL FUMARATE
     Route: 050
     Dates: start: 20160322
  10. AMPYRA [Concomitant]
     Active Substance: DALFAMPRIDINE
     Indication: GAIT DISTURBANCE
     Route: 050
     Dates: start: 20171009
  11. CARVEDILOL. [Concomitant]
     Active Substance: CARVEDILOL
     Route: 050
     Dates: start: 20180307
  12. TECFIDERA [Suspect]
     Active Substance: DIMETHYL FUMARATE
     Indication: MULTIPLE SCLEROSIS
     Route: 050
     Dates: start: 20171009
  13. AMPYRA [Concomitant]
     Active Substance: DALFAMPRIDINE
     Route: 050
  14. ADVAIR HFA [Concomitant]
     Active Substance: FLUTICASONE PROPIONATE\SALMETEROL XINAFOATE
     Dosage: 100/50 (UNITS UNKNOWN)
     Route: 050
     Dates: start: 20170109
  15. DULERA [Concomitant]
     Active Substance: FORMOTEROL FUMARATE DIHYDRATE\MOMETASONE FUROATE
     Dosage: 100-5 MCG
     Route: 050
  16. ZOLOFT [Concomitant]
     Active Substance: SERTRALINE HYDROCHLORIDE
     Route: 050
  17. PREDNISONE. [Concomitant]
     Active Substance: PREDNISONE
     Route: 050
  18. TECFIDERA [Suspect]
     Active Substance: DIMETHYL FUMARATE
     Route: 050
  19. AMPYRA [Concomitant]
     Active Substance: DALFAMPRIDINE
     Route: 050

REACTIONS (8)
  - Balance disorder [Not Recovered/Not Resolved]
  - Fall [Recovered/Resolved]
  - Multiple sclerosis [Unknown]
  - Asthenia [Not Recovered/Not Resolved]
  - Fatigue [Not Recovered/Not Resolved]
  - Musculoskeletal stiffness [Unknown]
  - Mobility decreased [Not Recovered/Not Resolved]
  - Hypoaesthesia [Not Recovered/Not Resolved]

NARRATIVE: CASE EVENT DATE: 20180112
